FAERS Safety Report 16092528 (Version 1)
Quarter: 2019Q1

REPORT INFORMATION
  Report Type: Spontaneous
  Country: RO (occurrence: RO)
  Receive Date: 20190319
  Receipt Date: 20190319
  Transmission Date: 20190418
  Serious: Yes (Other)
  Sender: FDA-Public Use
  Company Number: PHHY2019RO057972

PATIENT
  Age: 68 Year
  Sex: Male
  Weight: 86 kg

DRUGS (8)
  1. ENTRESTO [Suspect]
     Active Substance: SACUBITRIL\VALSARTAN
     Indication: CARDIAC FAILURE
     Dosage: 100 MG, UNK (49/51)
     Route: 048
  2. ENTRESTO [Suspect]
     Active Substance: SACUBITRIL\VALSARTAN
     Dosage: 100 MG, BID (49/51)
     Route: 048
     Dates: start: 20190311
  3. ENTRESTO [Suspect]
     Active Substance: SACUBITRIL\VALSARTAN
     Dosage: 2 DF, QD (97/103)
     Route: 048
     Dates: start: 20190118, end: 20190311
  4. OLICARD [Concomitant]
     Active Substance: ISOSORBIDE MONONITRATE
     Indication: MYOCARDIAL ISCHAEMIA
     Dosage: 2 DF, QD
     Route: 048
     Dates: start: 201810
  5. CORYOL [Concomitant]
     Active Substance: CARVEDILOL
     Indication: CARDIAC FAILURE
     Dosage: 2 DF, QD
     Route: 048
     Dates: start: 201810
  6. PENTOXIFILIN [Concomitant]
     Indication: PERIPHERAL ARTERIAL OCCLUSIVE DISEASE
     Dosage: 2 DF, QD
     Route: 065
     Dates: start: 201810
  7. PREDUCTAL [Concomitant]
     Active Substance: TRIMETAZIDINE DIHYDROCHLORIDE
     Indication: MYOCARDIAL ISCHAEMIA
     Dosage: 2 DF, QD
     Route: 048
     Dates: start: 201809
  8. XARELTO [Concomitant]
     Active Substance: RIVAROXABAN
     Indication: ATRIAL FIBRILLATION
     Dosage: 1 DF, QD
     Route: 048
     Dates: start: 201801

REACTIONS (2)
  - Haemoptysis [Unknown]
  - Cough [Unknown]

NARRATIVE: CASE EVENT DATE: 20190122
